FAERS Safety Report 19440669 (Version 1)
Quarter: 2021Q2

REPORT INFORMATION
  Report Type: Spontaneous
  Country: US (occurrence: US)
  Receive Date: 20210621
  Receipt Date: 20210621
  Transmission Date: 20210717
  Serious: Yes (Other)
  Sender: FDA-Public Use
  Company Number: US-STRIDES ARCOLAB LIMITED-2020SP016699

PATIENT
  Age: 70 Year
  Sex: Male

DRUGS (10)
  1. NOREPINEPHRINE. [Suspect]
     Active Substance: NOREPINEPHRINE
     Indication: VASOPLEGIA SYNDROME
     Dosage: 0.625 MICROGRAM PER KILOGRAM PER MINUTE
     Route: 065
  2. VASOPRESSIN. [Suspect]
     Active Substance: VASOPRESSIN
     Indication: VASOPLEGIA SYNDROME
     Dosage: 0.06 UNITS PER MIN
     Route: 065
  3. EPINEPHRINE. [Suspect]
     Active Substance: EPINEPHRINE
     Indication: VASOPLEGIA SYNDROME
     Dosage: 2 MICROGRAM PER MINUTE
     Route: 065
  4. METHYLTHIONINIUM CHLORIDE [Suspect]
     Active Substance: METHYLENE BLUE
     Indication: VASOPLEGIA SYNDROME
     Route: 065
  5. HYDROCORTISONE. [Suspect]
     Active Substance: HYDROCORTISONE
     Indication: VASOPLEGIA SYNDROME
     Dosage: UNK
     Route: 065
  6. VASOPRESSIN. [Suspect]
     Active Substance: VASOPRESSIN
     Dosage: 0.04 UNIT PER MINUTE
     Route: 065
  7. ANGIOTENSIN II [Concomitant]
     Active Substance: ANGIOTENSIN II
     Indication: SHOCK
     Dosage: 10 NANOGRAM PER KILOGRAM PER MINUTE
     Route: 065
  8. NOREPINEPHRINE. [Suspect]
     Active Substance: NOREPINEPHRINE
     Dosage: 0.25 MICROGRAM PER KILOGRAM PER MINUTE
     Route: 065
  9. NOREPINEPHRINE. [Suspect]
     Active Substance: NOREPINEPHRINE
     Dosage: 10 MICROGRAM PER GRAM PER MINUTE
     Route: 065
  10. FLUDROCORTISONE [Concomitant]
     Active Substance: FLUDROCORTISONE
     Indication: HYPOTENSION
     Dosage: UNK
     Route: 065

REACTIONS (1)
  - Drug ineffective for unapproved indication [Unknown]
